FAERS Safety Report 10396150 (Version 1)
Quarter: 2014Q1

REPORT INFORMATION
  Report Type: Spontaneous
  Country: US (occurrence: None)
  Receive Date: 20130118
  Receipt Date: 20130118
  Transmission Date: 20141002
  Serious: Yes (Hospitalization)
  Sender: FDA-Public Use
  Company Number: A-NJ2011-55200

PATIENT
  Age: 57 Year
  Sex: Female

DRUGS (5)
  1. TRACLEER (BOSENTAN) TABLET [Suspect]
     Indication: PULMONARY ARTERIAL HYPERTENSION
     Route: 048
  2. OXYGEN (OXYGEN) [Concomitant]
  3. REVATIO (SILDENAFIL CITRATE) [Concomitant]
  4. TYVASO (TREPROSTINIL SODIUM) [Concomitant]
  5. ASPIRIN (ACETYLSALICYCLIC ACID) [Concomitant]

REACTIONS (5)
  - Dizziness [None]
  - Cough [None]
  - Hypoaesthesia [None]
  - Hypotension [None]
  - Dyspnoea [None]
